FAERS Safety Report 8520994 (Version 2)
Quarter: 2012Q4

REPORT INFORMATION
  Report Type: Spontaneous
  Country: JP (occurrence: None)
  Receive Date: 20120412
  Receipt Date: 20121114
  Transmission Date: 20130627
  Serious: Yes (Death, Life-Threatening, Hospitalization)
  Sender: FDA-Public Use
  Company Number: THQ2012A02572

PATIENT
  Age: 63 Year
  Sex: Male

DRUGS (6)
  1. LANSOPRAZOLE [Suspect]
     Indication: GASTRIC ULCER
     Dosage: PER ORAL
     Route: 048
     Dates: start: 20100804, end: 20120131
  2. CRIZOTINIB [Suspect]
     Indication: NON-SMALL CELL LUNG CANCER
     Dosage: 500 MG (250 MG,2 IN 1 D) PER ORAL
     Route: 048
     Dates: start: 20111213, end: 20120130
  3. METHIMAZOLE [Suspect]
     Indication: HYPERTHYROIDISM
     Dosage: PER ORAL
     Route: 048
     Dates: start: 2001, end: 20120131
  4. WARFARIN SODIUM [Concomitant]
  5. LEVITRA [Concomitant]
  6. MAGNESIUM HYDROXIDE, PARAFFIN, LIQUID [Concomitant]

REACTIONS (14)
  - Pneumonitis [None]
  - Altered state of consciousness [None]
  - Haemoptysis [None]
  - Respiratory failure [None]
  - Pulmonary oedema [None]
  - Sputum culture positive [None]
  - Bacterial infection [None]
  - Fungal infection [None]
  - Hyperhidrosis [None]
  - Cyanosis [None]
  - Respiratory acidosis [None]
  - Gastrointestinal haemorrhage [None]
  - Renal failure acute [None]
  - Small intestinal haemorrhage [None]
